FAERS Safety Report 12825064 (Version 1)
Quarter: 2016Q4

REPORT INFORMATION
  Report Type: Report from Study
  Country: AU (occurrence: AU)
  Receive Date: 20161007
  Receipt Date: 20161007
  Transmission Date: 20170207
  Serious: Yes (Hospitalization)
  Sender: FDA-Public Use
  Company Number: AU-IPCA LABORATORIES LIMITED-IPC201609-000842

PATIENT

DRUGS (12)
  1. AMOXICILLIN/CLAVULANIC ACID [Suspect]
     Active Substance: AMOXICILLIN\CLAVULANIC ACID
  2. TRIMETHOPRIM. [Suspect]
     Active Substance: TRIMETHOPRIM
  3. METOPROLOL TARTRATE. [Suspect]
     Active Substance: METOPROLOL TARTRATE
  4. CLOPIDOGREL [Suspect]
     Active Substance: CLOPIDOGREL BISULFATE
  5. PARACETAMOL [Suspect]
     Active Substance: ACETAMINOPHEN
  6. ATENOLOL. [Suspect]
     Active Substance: ATENOLOL
  7. ACITRETIN. [Suspect]
     Active Substance: ACITRETIN
  8. LANSOPRAZOLE. [Suspect]
     Active Substance: LANSOPRAZOLE
  9. ATORVASTATIN [Suspect]
     Active Substance: ATORVASTATIN
  10. BICALUTAMIDE. [Suspect]
     Active Substance: BICALUTAMIDE
  11. TRAMADOL. [Suspect]
     Active Substance: TRAMADOL
  12. RAMIPRIL. [Suspect]
     Active Substance: RAMIPRIL

REACTIONS (1)
  - Drug-induced liver injury [Unknown]
